FAERS Safety Report 7358221-4 (Version None)
Quarter: 2011Q1

REPORT INFORMATION
  Report Type: 
  Country: None (occurrence: None)
  Receive Date: 20110317
  Receipt Date: 20110310
  Transmission Date: 20110831
  Serious: Yes (Life-Threatening)
  Sender: FDA-Public Use
  Company Number: JP-ROCHE-759971

PATIENT
  Sex: Male
  Weight: 52 kg

DRUGS (13)
  1. RIVOTRIL [Suspect]
     Indication: CONVULSION
     Dosage: SINGLE USE
     Route: 048
     Dates: start: 20101210, end: 20110211
  2. PENTASA [Concomitant]
     Route: 048
  3. PREDONINE [Concomitant]
     Route: 048
  4. ARTIST [Concomitant]
     Route: 048
  5. MUCOSOLATE [Concomitant]
     Route: 048
     Dates: start: 20101201
  6. LANSOPRAZOLE [Concomitant]
     Route: 048
  7. RIKKUNSHI-TO [Concomitant]
     Route: 048
     Dates: start: 20110129
  8. ASVERIN [Concomitant]
     Dosage: FORM REPORTED AS POWDERED MEDICINE.
     Route: 048
  9. LASIX [Concomitant]
     Route: 048
  10. LIPITOR [Concomitant]
     Route: 048
  11. TIZANIDINE HYDROCHLORIDE [Concomitant]
     Dosage: DRUG NAME REPORTED AS TIZANELIN.
     Route: 048
  12. BROMHEXINE HYDROCHLORIDE [Concomitant]
     Dosage: DRUG NAME REPORTED AS HAPYSUOL(BROMHEXINE HYDROCHLORIDE).
     Route: 048
     Dates: start: 20101229
  13. SALOBEL [Concomitant]
     Route: 048

REACTIONS (3)
  - HAEMOGLOBIN DECREASED [None]
  - RESPIRATORY DEPRESSION [None]
  - RESPIRATORY ARREST [None]
